FAERS Safety Report 5785223-1 (Version None)
Quarter: 2008Q2

REPORT INFORMATION
  Report Type: 
  Country: None (occurrence: None)
  Receive Date: 20080605
  Receipt Date: 20080423
  Transmission Date: 20081010
  Serious: No
  Sender: FDA-Public Use
  Company Number: A0724299A

PATIENT
  Age: 52 Year
  Sex: Female

DRUGS (5)
  1. ALLI [Suspect]
     Dates: start: 20080418
  2. OMEGA 3 FISH OIL [Concomitant]
  3. CALCIUM SUPPLEMENT [Concomitant]
  4. MAGNESIUM SUPPLEMENT [Concomitant]
  5. MULTI-VITAMIN [Concomitant]

REACTIONS (4)
  - FAECES HARD [None]
  - FAECES PALE [None]
  - FLATULENCE [None]
  - FREQUENT BOWEL MOVEMENTS [None]
